FAERS Safety Report 16961692 (Version 9)
Quarter: 2021Q3

REPORT INFORMATION
  Report Type: Spontaneous
  Country: US (occurrence: US)
  Receive Date: 20191025
  Receipt Date: 20210806
  Transmission Date: 20211014
  Serious: Yes (Hospitalization)
  Sender: FDA-Public Use
  Company Number: US-PFIZER INC-2018436535

PATIENT
  Age: 70 Year
  Sex: Female
  Weight: 84 kg

DRUGS (3)
  1. LYRICA [Suspect]
     Active Substance: PREGABALIN
     Indication: INTERVERTEBRAL DISC DISORDER
     Dosage: 150 MG, 3X/DAY (FOR 30 DAYS (1 CAPSULE, Q (EVERY) 8HRS)
     Route: 048
  2. LYRICA [Suspect]
     Active Substance: PREGABALIN
     Indication: NEURALGIA
  3. LYRICA [Suspect]
     Active Substance: PREGABALIN
     Indication: LUMBAR RADICULOPATHY

REACTIONS (6)
  - Visual impairment [Unknown]
  - Off label use [Unknown]
  - Pain [Not Recovered/Not Resolved]
  - Sneezing [Unknown]
  - Ingrowing nail [Not Recovered/Not Resolved]
  - Seasonal allergy [Unknown]
